FAERS Safety Report 4750601-6 (Version None)
Quarter: 2005Q3

REPORT INFORMATION
  Report Type: 
  Country: None (occurrence: None)
  Receive Date: 20050818
  Receipt Date: 20050809
  Transmission Date: 20060218
  Serious: No
  Sender: FDA-Public Use
  Company Number: JP-2005-003487

PATIENT
  Age: 30 Year
  Sex: Male
  Weight: 58.4 kg

DRUGS (8)
  1. BETAFERON (INTERFERON BETA - 1B) INJECTION, 250 MICROG [Suspect]
     Indication: MULTIPLE SCLEROSIS
     Dosage: 4 MIU, EVERY 2D, SUBCUTANEOUS
     Route: 058
     Dates: start: 20050105, end: 20050202
  2. PREDONINE TABLET [Concomitant]
  3. ALTAT (ROXATIDINE ACETATE HYDROCHLORIDE) CAPSULE [Concomitant]
  4. SELBEX (TEPRENONE) CAPSULE [Concomitant]
  5. ALFAROL (ALFACALCIDOL) CAPSULE [Concomitant]
  6. DANTRIUM [Concomitant]
  7. METHYLCOBAL (MECOBALAMIN) TABLET [Concomitant]
  8. RIVOTRIL (CLONAZEPAM) [Concomitant]

REACTIONS (4)
  - DERMATITIS PSORIASIFORM [None]
  - DRUG ERUPTION [None]
  - MULTIPLE SCLEROSIS RELAPSE [None]
  - WHITE BLOOD CELL COUNT DECREASED [None]
